FAERS Safety Report 25089526 (Version 1)
Quarter: 2025Q1

REPORT INFORMATION
  Report Type: Spontaneous
  Country: AT (occurrence: AT)
  Receive Date: 20250318
  Receipt Date: 20250318
  Transmission Date: 20250409
  Serious: Yes (Other)
  Sender: SERVIER
  Company Number: AT-SERVIER-S25000709

PATIENT

DRUGS (4)
  1. TIBSOVO [Suspect]
     Active Substance: IVOSIDENIB
     Indication: Cholangiocarcinoma
     Dosage: 500 MG, QD
     Route: 048
     Dates: start: 202401, end: 202411
  2. FLUOROURACIL [Suspect]
     Active Substance: FLUOROURACIL
     Indication: Cholangiocarcinoma
     Route: 042
     Dates: start: 202411
  3. LEUCOVORIN [Suspect]
     Active Substance: LEUCOVORIN\LEUCOVORIN CALCIUM
     Indication: Cholangiocarcinoma
     Route: 042
     Dates: start: 202411
  4. OXALIPLATIN [Suspect]
     Active Substance: OXALIPLATIN
     Indication: Cholangiocarcinoma
     Route: 042
     Dates: start: 202411

REACTIONS (4)
  - Malignant neoplasm progression [Unknown]
  - Fatigue [Unknown]
  - Polyneuropathy [Unknown]
  - Drug ineffective [Recovered/Resolved]

NARRATIVE: CASE EVENT DATE: 20241101
